FAERS Safety Report 4452246-4 (Version None)
Quarter: 2004Q3

REPORT INFORMATION
  Report Type: 
  Country: None (occurrence: None)
  Receive Date: 20040917
  Receipt Date: 20040910
  Transmission Date: 20050211
  Serious: Yes (Hospitalization)
  Sender: FDA-Public Use
  Company Number: DE-JNJFOC-20040406341

PATIENT
  Age: 66 Year
  Sex: Female
  Weight: 43 kg

DRUGS (7)
  1. CAELYX [Suspect]
     Dosage: X 2 CYCLES
     Route: 042
  2. CAELYX [Suspect]
     Route: 042
  3. CARBOPLATIN [Suspect]
     Route: 042
  4. CARBOPLATIN [Suspect]
     Route: 042
  5. CARBOPLATIN [Suspect]
     Route: 042
  6. DEXAMETHASONE [Concomitant]
     Indication: PROPHYLACTIC CHEMOTHERAPY
     Dosage: X 3 DOSES
     Route: 042
  7. GRANISETRON [Concomitant]
     Dosage: X 3 DOSES
     Route: 042

REACTIONS (2)
  - CHOLESTASIS [None]
  - HEPATIC PAIN [None]
